FAERS Safety Report 17270055 (Version 1)
Quarter: 2020Q1

REPORT INFORMATION
  Report Type: Spontaneous
  Country: US (occurrence: US)
  Receive Date: 20200114
  Receipt Date: 20200114
  Transmission Date: 20200409
  Serious: Yes (Other)
  Sender: FDA-Public Use
  Company Number: US-PARI RESPIRATORY EQUIPMENT, INC.-2019PAR00007

PATIENT
  Age: 19 Year
  Sex: Male

DRUGS (10)
  1. CAYSTON [Concomitant]
     Active Substance: AZTREONAM
  2. PULMOZYME [Concomitant]
     Active Substance: DORNASE ALFA
  3. UNSPECIFIED VITAMINS [Concomitant]
     Active Substance: VITAMINS
  4. ALLEGRA [Concomitant]
     Active Substance: FEXOFENADINE HYDROCHLORIDE
  5. HYPERTONIC SALINE [Concomitant]
     Active Substance: SODIUM CHLORIDE
  6. ZENPEP [Concomitant]
     Active Substance: PANCRELIPASE AMYLASE\PANCRELIPASE LIPASE\PANCRELIPASE PROTEASE
  7. ALBUTEROL. [Concomitant]
     Active Substance: ALBUTEROL
  8. KITABIS PAK [Suspect]
     Active Substance: TOBRAMYCIN
     Indication: PSEUDOMONAS INFECTION
     Dosage: 300 MG, 2X/DAY
     Dates: start: 20180328, end: 20181115
  9. ADVAIR HFA [Concomitant]
     Active Substance: FLUTICASONE PROPIONATE\SALMETEROL XINAFOATE
  10. SINGULAIR [Concomitant]
     Active Substance: MONTELUKAST SODIUM

REACTIONS (4)
  - Haemoptysis [Unknown]
  - Cough [Not Recovered/Not Resolved]
  - Drug ineffective [Recovered/Resolved]
  - Pulmonary congestion [Not Recovered/Not Resolved]

NARRATIVE: CASE EVENT DATE: 20180328
